FAERS Safety Report 7287721-0 (Version None)
Quarter: 2011Q1

REPORT INFORMATION
  Report Type: 
  Country: None (occurrence: None)
  Receive Date: 20110208
  Receipt Date: 20110208
  Transmission Date: 20110831
  Serious: Yes (Hospitalization)
  Sender: FDA-Public Use
  Company Number: None

PATIENT
  Age: 47 Year
  Sex: Male
  Weight: 108.7272 kg

DRUGS (1)
  1. BCG VACCEINE [Suspect]
     Indication: BLADDER CANCER

REACTIONS (2)
  - INFLUENZA LIKE ILLNESS [None]
  - BLOOD URINE PRESENT [None]
